FAERS Safety Report 10507735 (Version 1)
Quarter: 2014Q4

REPORT INFORMATION
  Report Type: Spontaneous
  Country: US (occurrence: None)
  Receive Date: 20141008
  Receipt Date: 20141008
  Transmission Date: 20150528
  Serious: Yes (Hospitalization)
  Sender: FDA-Public Use
  Company Number: None

PATIENT
  Age: 88 Year
  Sex: Male

DRUGS (1)
  1. XTANDI [Suspect]
     Active Substance: ENZALUTAMIDE
     Indication: NEOPLASM MALIGNANT
     Dosage: 160MG DAILYPO
     Route: 048
     Dates: start: 20140925

REACTIONS (2)
  - Prostate cancer [None]
  - Disease complication [None]

NARRATIVE: CASE EVENT DATE: 20141003
